FAERS Safety Report 18442400 (Version 1)
Quarter: 2020Q4

REPORT INFORMATION
  Report Type: Spontaneous
  Country: US (occurrence: US)
  Receive Date: 20201029
  Receipt Date: 20201029
  Transmission Date: 20210114
  Serious: Yes (Hospitalization)
  Sender: FDA-Public Use
  Company Number: US-FRESENIUS KABI-FK202011398

PATIENT
  Age: 72 Year
  Sex: Female

DRUGS (4)
  1. IRINOTECAN [Suspect]
     Active Substance: IRINOTECAN
     Indication: ADENOCARCINOMA PANCREAS
     Dosage: 70 MG/M2 IV Q 14 DAYS
     Route: 042
     Dates: start: 20200807, end: 20200807
  2. CALCIUM FOLINATE [Suspect]
     Active Substance: LEUCOVORIN CALCIUM
     Indication: ADENOCARCINOMA PANCREAS
     Dosage: 400 MG/M2 IV Q 14 DAYS
     Route: 042
     Dates: start: 20200807, end: 20200807
  3. FLUOROURACIL (MANUFACTURER UNKNOWN) [Suspect]
     Active Substance: FLUOROURACIL
     Indication: ADENOCARCINOMA PANCREAS
     Dosage: CONTINUOUS INFUSION OVER 46 HRS
     Route: 065
     Dates: start: 20200807, end: 20200809
  4. PARICALCITOL. [Suspect]
     Active Substance: PARICALCITOL
     Indication: ADENOCARCINOMA PANCREAS
     Dosage: 7 MCG/KG IV Q WEEKLY
     Route: 042
     Dates: start: 20200807, end: 20200807

REACTIONS (4)
  - Dyspnoea [Unknown]
  - Febrile neutropenia [Recovered/Resolved]
  - Fatigue [Unknown]
  - Nausea [Unknown]

NARRATIVE: CASE EVENT DATE: 20200818
